FAERS Safety Report 9295487 (Version 1)
Quarter: 2013Q1

REPORT INFORMATION
  Report Type: Spontaneous
  Country: US (occurrence: None)
  Receive Date: 20121227
  Receipt Date: 20121227
  Transmission Date: 20140127
  Serious: Yes (Other)
  Sender: FDA-Public Use
  Company Number: PHEH2012US008143

PATIENT
  Age: 49 Year
  Sex: Female
  Weight: 160 kg

DRUGS (6)
  1. EXJADE [Suspect]
     Indication: IRON OVERLOAD
     Route: 048
  2. FOLIC ACID (FOLIC ACID) [Concomitant]
  3. BYSTOLIC (NEVIVOLOL HYDROCHLORIDE) [Concomitant]
  4. MULTIVITAMINS (ASCORBIC ACID, ERGOCALCIFEROL, FOLIC ACID, NICOTINAMIDE, PANTHENOL, RETINOL, RIBOFLAVIN, THIAMINE HYDROCHLORIDE) [Concomitant]
  5. ZYRTEC (CETIRIZINE HYDROCHLORIDE) [Concomitant]
  6. CARDENE *NICARDIPINE HYDROCHLORIDE) [Concomitant]

REACTIONS (1)
  - Blood urea nitrogen/creatinine ratio increased [None]
